FAERS Safety Report 6398516-4 (Version None)
Quarter: 2009Q4

REPORT INFORMATION
  Report Type: 
  Country: None (occurrence: None)
  Receive Date: 20091013
  Receipt Date: 20091005
  Transmission Date: 20100525
  Serious: Yes (Life-Threatening, Hospitalization)
  Sender: FDA-Public Use
  Company Number: B0597687A

PATIENT
  Sex: Male
  Weight: 94 kg

DRUGS (1)
  1. ALLI [Suspect]
     Indication: OBESITY
     Route: 065
     Dates: start: 20090101, end: 20090807

REACTIONS (1)
  - PANCREATITIS [None]
